FAERS Safety Report 5145977-4 (Version None)
Quarter: 2006Q4

REPORT INFORMATION
  Report Type: 
  Country: None (occurrence: None)
  Receive Date: 20061108
  Receipt Date: 20061102
  Transmission Date: 20070319
  Serious: Yes (Other)
  Sender: FDA-Public Use
  Company Number: CH-BRISTOL-MYERS SQUIBB COMPANY-13565684

PATIENT
  Age: 44 Year
  Sex: Female
  Weight: 100 kg

DRUGS (8)
  1. PRAVASTATIN SODIUM [Suspect]
     Indication: HYPERCHOLESTEROLAEMIA
     Route: 048
     Dates: start: 20060602
  2. ZANIDIP [Suspect]
     Indication: ESSENTIAL HYPERTENSION
     Route: 048
     Dates: start: 20060613, end: 20060620
  3. ALLO-BASAN [Suspect]
     Indication: HYPERURICAEMIA
     Route: 048
     Dates: start: 20060602
  4. ASPIRIN [Concomitant]
     Indication: HYPERTENSIVE HEART DISEASE
     Route: 048
  5. PHYSIOTENS [Concomitant]
     Indication: ESSENTIAL HYPERTENSION
     Route: 048
  6. CO-DIOVAN [Concomitant]
     Indication: ESSENTIAL HYPERTENSION
     Dosage: 25MG/160MG
     Route: 048
  7. ELTROXIN [Concomitant]
     Indication: HYPOTHYROIDISM
     Route: 048
  8. DAFALGAN [Concomitant]
     Route: 048

REACTIONS (1)
  - RETINAL VEIN THROMBOSIS [None]
